FAERS Safety Report 6786867-0 (Version None)
Quarter: 2010Q2

REPORT INFORMATION
  Report Type: 
  Country: None (occurrence: None)
  Receive Date: 20100623
  Receipt Date: 20100621
  Transmission Date: 20101027
  Serious: Yes (Other)
  Sender: FDA-Public Use
  Company Number: US-RB-011916-10

PATIENT
  Sex: Male

DRUGS (1)
  1. SUBOXONE [Suspect]
     Dosage: TOOK 16-24 MG DAILY
     Route: 060
     Dates: start: 20091001, end: 20100601

REACTIONS (1)
  - SUICIDAL IDEATION [None]
